FAERS Safety Report 23272523 (Version 1)
Quarter: 2023Q4

REPORT INFORMATION
  Report Type: Spontaneous
  Country: JP (occurrence: JP)
  Receive Date: 20231207
  Receipt Date: 20231207
  Transmission Date: 20240109
  Serious: Yes (Hospitalization, Other)
  Sender: FDA-Public Use
  Company Number: JP-SUN PHARMACEUTICAL INDUSTRIES LTD-2023R1-422381

PATIENT
  Age: 74 Year
  Sex: Male

DRUGS (2)
  1. ALENDRONATE [Suspect]
     Active Substance: ALENDRONATE SODIUM
     Indication: Waldenstrom^s macroglobulinaemia
     Dosage: 35 MILLIGRAM, WEEKLY
     Route: 065
  2. ALFACALCIDOL [Suspect]
     Active Substance: ALFACALCIDOL
     Indication: Waldenstrom^s macroglobulinaemia
     Dosage: 0.5 MICROGRAM, QD
     Route: 065

REACTIONS (3)
  - Resorption bone increased [Recovering/Resolving]
  - Fibroblast growth factor 23 [Recovering/Resolving]
  - Hypophosphataemia [Recovering/Resolving]
